FAERS Safety Report 6813212-4 (Version None)
Quarter: 2010Q3

REPORT INFORMATION
  Report Type: 
  Country: None (occurrence: None)
  Receive Date: 20100701
  Receipt Date: 20100621
  Transmission Date: 20110219
  Serious: Yes (Other)
  Sender: FDA-Public Use
  Company Number: JP-PFIZER INC-2010076772

PATIENT
  Sex: Male

DRUGS (1)
  1. GABAPEN [Suspect]
     Dosage: UNK
     Route: 048

REACTIONS (2)
  - DYSURIA [None]
  - PROTEINURIA [None]
